FAERS Safety Report 6652815-7 (Version None)
Quarter: 2010Q1

REPORT INFORMATION
  Report Type: 
  Country: None (occurrence: None)
  Receive Date: 20100325
  Receipt Date: 20100325
  Transmission Date: 20100710
  Serious: Yes (Other)
  Sender: FDA-Public Use
  Company Number: None

PATIENT
  Age: 47 Year
  Sex: Male
  Weight: 85.7298 kg

DRUGS (1)
  1. HYDROXYZINE HCL [Suspect]
     Indication: CONJUNCTIVITIS INFECTIVE
     Dosage: TWICE DAILY PO
     Route: 048
     Dates: start: 20100318

REACTIONS (1)
  - EPISTAXIS [None]
